FAERS Safety Report 20305243 (Version 1)
Quarter: 2022Q1

REPORT INFORMATION
  Report Type: Spontaneous
  Country: GB (occurrence: GB)
  Receive Date: 20220106
  Receipt Date: 20220106
  Transmission Date: 20220423
  Serious: Yes (Life-Threatening, Hospitalization, Other)
  Sender: FDA-Public Use
  Company Number: None

PATIENT
  Age: 69 Year
  Sex: Male

DRUGS (11)
  1. GABAPENTIN [Suspect]
     Active Substance: GABAPENTIN
     Indication: Product used for unknown indication
     Dosage: 400 MILLIGRAM, TID
     Route: 048
  2. TACROLIMUS [Suspect]
     Active Substance: TACROLIMUS
     Indication: Prophylaxis against transplant rejection
     Dosage: 4 MILLIGRAM, BID
     Route: 048
  3. MORPHINE SULFATE [Suspect]
     Active Substance: MORPHINE SULFATE
     Dosage: 10 MILLIGRAM, BID
     Route: 048
     Dates: end: 20210706
  4. AMITRIPTYLINE [Concomitant]
     Active Substance: AMITRIPTYLINE
     Dosage: 10 MILLIGRAM
  5. AZATHIOPRINE [Concomitant]
     Active Substance: AZATHIOPRINE
     Dosage: 50 MILLIGRAM, QD
  6. IBUPROFEN [Concomitant]
     Active Substance: IBUPROFEN
     Dosage: WHEN REQUIRED
  7. LANSOPRAZOLE ABBOTT [Concomitant]
     Dosage: 30 MILLIGRAM, QD
  8. MORPHINE SULFATE [Concomitant]
     Active Substance: MORPHINE SULFATE
     Dosage: 10MG/5ML 2.5MG UP QDS PRN
  9. Paracetamol + aceclofenac [Concomitant]
     Dosage: UNK
  10. QUININE SULFATE [Concomitant]
     Active Substance: QUININE SULFATE
     Dosage: 300 MILLIGRAM
  11. SERTRALINE [Concomitant]
     Active Substance: SERTRALINE HYDROCHLORIDE
     Dosage: 100 MILLIGRAM, QD

REACTIONS (10)
  - Confusional state [Recovered/Resolved]
  - Fall [Unknown]
  - Acute kidney injury [Recovered/Resolved]
  - Medication error [Unknown]
  - Drug level above therapeutic [Unknown]
  - Muscle twitching [Unknown]
  - Toxicity to various agents [Unknown]
  - Splenomegaly [Unknown]
  - Blood creatinine increased [Unknown]
  - Prothrombin time prolonged [Unknown]

NARRATIVE: CASE EVENT DATE: 20210627
